FAERS Safety Report 6421639-8 (Version None)
Quarter: 2009Q4

REPORT INFORMATION
  Report Type: 
  Country: None (occurrence: None)
  Receive Date: 20091030
  Receipt Date: 20091021
  Transmission Date: 20100525
  Serious: Yes (Hospitalization)
  Sender: FDA-Public Use
  Company Number: FR-PFIZER INC-2009286351

PATIENT
  Age: 70 Year

DRUGS (15)
  1. DALACINE [Suspect]
     Indication: INFECTION
     Dosage: 600 MG, 3X/DAY
     Route: 048
     Dates: start: 20090401, end: 20090714
  2. TIENAM [Suspect]
     Indication: INFECTION
     Dosage: 500 MG, 3X/DAY
     Route: 042
     Dates: start: 20090401, end: 20090714
  3. FOSFOCINE [Suspect]
     Indication: INFECTION
     Dosage: 4 G, 3X/DAY
     Route: 042
     Dates: start: 20090401, end: 20090617
  4. ATARAX [Concomitant]
     Indication: ANXIETY
     Dosage: 100 MG, 1X/DAY
     Route: 048
     Dates: end: 20090529
  5. NOVONORM [Concomitant]
     Indication: TYPE 2 DIABETES MELLITUS
     Dosage: 2 MG, 2X/DAY
     Route: 048
  6. INSULIN DETEMIR [Concomitant]
     Indication: TYPE 2 DIABETES MELLITUS
     Route: 058
  7. CACIT D3 [Concomitant]
     Indication: HYPOVITAMINOSIS
     Route: 048
  8. DIFFU K [Concomitant]
     Indication: HYPOKALAEMIA
     Dosage: 600 MG, 2X/DAY
     Route: 048
  9. KARDEGIC [Concomitant]
     Indication: CARDIOVASCULAR EVENT PROPHYLAXIS
     Dosage: 160 MG, 1X/DAY
     Route: 048
  10. LERCANIDIPINE [Concomitant]
     Indication: HYPERTENSION
     Dosage: 20 MG, 1X/DAY
     Route: 048
  11. NEBIVOLOL [Concomitant]
     Indication: HYPERTENSION
     Dosage: 5 MG, 1X/DAY
     Route: 048
  12. NEXIUM [Concomitant]
     Indication: GASTROOESOPHAGEAL REFLUX DISEASE
     Dosage: 40 MG, 1X/DAY
     Route: 048
  13. ATHYMIL [Concomitant]
     Indication: DEPRESSION
     Dosage: 10 MG, 2X/DAY
     Route: 048
  14. LOVENOX [Concomitant]
     Indication: THROMBOSIS PROPHYLAXIS
     Dosage: 4000 IU, 1X/DAY
     Route: 058
  15. COVERSYL [Concomitant]
     Indication: HYPERTENSION
     Dosage: 4 MG, 1X/DAY
     Route: 048

REACTIONS (1)
  - CHOLESTASIS [None]
